FAERS Safety Report 5830229-7 (Version None)
Quarter: 2008Q3

REPORT INFORMATION
  Report Type: 
  Country: None (occurrence: None)
  Receive Date: 20080801
  Receipt Date: 20080728
  Transmission Date: 20090109
  Serious: Yes (Death)
  Sender: FDA-Public Use
  Company Number: B0528014A

PATIENT
  Age: 87 Year
  Sex: Male
  Weight: 50 kg

DRUGS (13)
  1. ARIXTRA [Suspect]
     Indication: THROMBOSIS PROPHYLAXIS
     Dosage: 1.5MG PER DAY
     Route: 058
     Dates: start: 20080417, end: 20080418
  2. THEO-DUR [Concomitant]
     Dosage: 100MG TWICE PER DAY
     Route: 048
     Dates: end: 20080418
  3. CANDESARTAN CILEXETIL [Concomitant]
     Dosage: 8MG PER DAY
     Route: 048
     Dates: end: 20080418
  4. LANDEL [Concomitant]
     Dosage: 40MG PER DAY
     Route: 048
     Dates: end: 20080418
  5. LENDORMIN [Concomitant]
     Route: 048
     Dates: end: 20080418
  6. UNSPECIFIED DRUG [Concomitant]
     Route: 031
     Dates: end: 20080418
  7. KARY UNI [Concomitant]
     Route: 031
     Dates: start: 20070101, end: 20080418
  8. UNKNOWN DRUG [Concomitant]
     Route: 048
     Dates: end: 20080418
  9. BAYCARON [Concomitant]
     Route: 048
     Dates: end: 20080418
  10. FAMOTIDINE [Concomitant]
     Dosage: 20MG PER DAY
     Route: 048
  11. QVAR 40 [Concomitant]
     Route: 055
     Dates: end: 20080418
  12. ANHIBA [Concomitant]
     Indication: PAIN
     Dosage: 600MG PER DAY
     Route: 054
     Dates: start: 20080416, end: 20080418
  13. ACETAMINOPHEN [Concomitant]
     Indication: PAIN
     Dosage: 1200MG PER DAY
     Route: 054
     Dates: start: 20080412, end: 20080418

REACTIONS (12)
  - DISSEMINATED INTRAVASCULAR COAGULATION [None]
  - GASTROINTESTINAL NECROSIS [None]
  - HAEMATEMESIS [None]
  - HAEMATOCHEZIA [None]
  - HEPATIC FAILURE [None]
  - LOWER GASTROINTESTINAL HAEMORRHAGE [None]
  - MELAENA [None]
  - MULTI-ORGAN FAILURE [None]
  - RENAL FAILURE ACUTE [None]
  - SHOCK [None]
  - SHOCK HAEMORRHAGIC [None]
  - UPPER GASTROINTESTINAL HAEMORRHAGE [None]
